FAERS Safety Report 9651896 (Version 1)
Quarter: 2013Q4

REPORT INFORMATION
  Report Type: Spontaneous
  Country: US (occurrence: US)
  Receive Date: 20131029
  Receipt Date: 20131029
  Transmission Date: 20140711
  Serious: No
  Sender: FDA-Public Use
  Company Number: US-ENDO PHARMACEUTICALS INC.-LACT20120009

PATIENT
  Age: 87 Year
  Sex: Female

DRUGS (3)
  1. LACTULOSE ORAL SOLUTION [Suspect]
     Indication: CONSTIPATION
     Dosage: 40 G/ML
     Route: 048
     Dates: start: 201211
  2. LACTULOSE ORAL SOLUTION [Suspect]
     Dosage: 13.3 G/ML
     Route: 048
     Dates: start: 201211
  3. AMLODIPINE BESYLATE TABLETS [Suspect]
     Indication: HYPERTENSION
     Dosage: UNKNOWN
     Route: 048
     Dates: start: 201211

REACTIONS (1)
  - Diarrhoea [Recovered/Resolved]
